FAERS Safety Report 9185727 (Version 2)
Quarter: 2013Q2

REPORT INFORMATION
  Report Type: Report from Study
  Country: CA (occurrence: CA)
  Receive Date: 20130325
  Receipt Date: 20130403
  Transmission Date: 20140414
  Serious: Yes (Death, Hospitalization, Other)
  Sender: FDA-Public Use
  Company Number: PHHY2012CA113814

PATIENT
  Age: 81 Year
  Sex: Male

DRUGS (10)
  1. CLOZARIL [Suspect]
     Indication: SCHIZOPHRENIA
     Dosage: 12.5 MG,
     Route: 048
     Dates: start: 20101215
  2. SINEMET [Concomitant]
  3. PRADAX [Concomitant]
  4. ZOPICLONE [Concomitant]
  5. VITAMIN D [Concomitant]
  6. BIZ [Concomitant]
  7. MEMANTINA [Concomitant]
  8. COMPTAN [Concomitant]
  9. NITROGLYCERIN [Concomitant]
  10. DONEPEZIL [Concomitant]

REACTIONS (7)
  - Parkinson^s disease [Fatal]
  - Cardiac failure congestive [Fatal]
  - Dementia [Fatal]
  - Weight decreased [Unknown]
  - Malaise [Unknown]
  - Haemoglobin decreased [Unknown]
  - Fall [Unknown]
